FAERS Safety Report 25406552 (Version 1)
Quarter: 2025Q2

REPORT INFORMATION
  Report Type: Report from Study
  Country: CA (occurrence: CA)
  Receive Date: 20250606
  Receipt Date: 20250606
  Transmission Date: 20250716
  Serious: No
  Sender: ASTELLAS
  Company Number: CA-ASTELLAS-2025-AER-029257

PATIENT
  Age: 56 Year
  Sex: Female

DRUGS (1)
  1. FEZOLINETANT [Suspect]
     Active Substance: FEZOLINETANT
     Indication: Menopause
     Route: 048

REACTIONS (1)
  - Hepatic enzyme increased [Unknown]
